FAERS Safety Report 12873132 (Version 4)
Quarter: 2016Q4

REPORT INFORMATION
  Report Type: Report from Study
  Country: US (occurrence: US)
  Receive Date: 20161021
  Receipt Date: 20161227
  Transmission Date: 20170207
  Serious: Yes (Hospitalization, Other)
  Sender: FDA-Public Use
  Company Number: PHHO2016US013356

PATIENT
  Age: 12 Year
  Sex: Female
  Weight: 50.1 kg

DRUGS (16)
  1. CICLOSPORIN [Suspect]
     Active Substance: CYCLOSPORINE
     Indication: JUVENILE IDIOPATHIC ARTHRITIS
     Dosage: 70 MG, QD
     Route: 065
     Dates: start: 201311, end: 201504
  2. IMMUNE GLOBULIN [Suspect]
     Active Substance: HUMAN IMMUNOGLOBULIN G
     Indication: JUVENILE IDIOPATHIC ARTHRITIS
     Dosage: 70 G, QD
     Route: 065
     Dates: start: 201603
  3. CALCIUM [Concomitant]
     Active Substance: CALCIUM
     Indication: OSTEOPENIA
     Dosage: 1200 MG, UNK
     Route: 065
  4. ACZ885 [Suspect]
     Active Substance: CANAKINUMAB
     Indication: JUVENILE IDIOPATHIC ARTHRITIS
     Dosage: 180 MG, QD
     Route: 058
     Dates: start: 20130531, end: 201506
  5. LISINOPRIL. [Concomitant]
     Active Substance: LISINOPRIL
     Indication: PRODUCT USED FOR UNKNOWN INDICATION
     Route: 065
  6. CICLOSPORIN [Suspect]
     Active Substance: CYCLOSPORINE
     Dosage: 100 MG, QD
     Route: 065
     Dates: start: 20150924, end: 201603
  7. RILONACEPT [Concomitant]
     Active Substance: RILONACEPT
     Indication: JUVENILE IDIOPATHIC ARTHRITIS
     Dosage: 110 MG, WEEKLY
     Route: 058
     Dates: start: 201606
  8. KINERET [Suspect]
     Active Substance: ANAKINRA
     Indication: HISTIOCYTOSIS HAEMATOPHAGIC
     Dosage: 100 MG, QD
     Route: 065
     Dates: start: 20151013, end: 20160625
  9. CLARITIN [Concomitant]
     Active Substance: LORATADINE
     Indication: PRODUCT USED FOR UNKNOWN INDICATION
     Route: 065
  10. FERROUS SULFATE. [Concomitant]
     Active Substance: FERROUS SULFATE
     Indication: ANAEMIA
     Dosage: 325 MG, UNK
     Route: 065
     Dates: start: 20151217
  11. KINERET [Suspect]
     Active Substance: ANAKINRA
     Indication: JUVENILE IDIOPATHIC ARTHRITIS
     Dosage: 20 MG, QD
     Route: 065
     Dates: start: 20110919, end: 20130527
  12. LORATADINE. [Concomitant]
     Active Substance: LORATADINE
     Indication: ANAEMIA
     Dosage: 10 MG, UNK
     Route: 065
  13. NORDITROPIN [Concomitant]
     Active Substance: SOMATROPIN
     Indication: GROWTH RETARDATION
     Dosage: 1.4 MG, UNK
     Route: 065
     Dates: start: 20140707
  14. PROGRAF [Suspect]
     Active Substance: TACROLIMUS\TACROLIMUS ANHYDROUS
     Indication: JUVENILE IDIOPATHIC ARTHRITIS
     Dosage: 1.6 MG, QD
     Route: 048
     Dates: start: 201504, end: 201507
  15. VYVANSE [Concomitant]
     Active Substance: LISDEXAMFETAMINE DIMESYLATE
     Indication: ATTENTION DEFICIT/HYPERACTIVITY DISORDER
     Dosage: 40 MG, UNK
     Route: 065
  16. IRON [Concomitant]
     Active Substance: IRON
     Indication: PRODUCT USED FOR UNKNOWN INDICATION
     Route: 065

REACTIONS (9)
  - Leukopenia [Unknown]
  - Thrombocytopenia [Not Recovered/Not Resolved]
  - Fatigue [Recovering/Resolving]
  - Gastritis haemorrhagic [Recovered/Resolved]
  - Anaemia [Recovered/Resolved]
  - Hepatitis [Recovering/Resolving]
  - Bacteraemia [Recovered/Resolved]
  - Histiocytosis haematophagic [Recovered/Resolved with Sequelae]
  - Osteomyelitis [Unknown]

NARRATIVE: CASE EVENT DATE: 20160531
